FAERS Safety Report 10181602 (Version 4)
Quarter: 2014Q2

REPORT INFORMATION
  Report Type: Not Available
  Country: US (occurrence: US)
  Receive Date: 20140519
  Receipt Date: 20140609
  Transmission Date: 20141212
  Serious: Yes (Other)
  Sender: FDA-Public Use
  Company Number: US-ONYX-2014-0997

PATIENT
  Age: 66 Year
  Sex: Female

DRUGS (10)
  1. KYPROLIS [Suspect]
     Indication: PLASMA CELL MYELOMA
     Route: 042
     Dates: start: 201302
  2. KYPROLIS [Suspect]
     Dates: start: 2013, end: 201311
  3. KYPROLIS [Suspect]
     Dates: start: 201311, end: 20140204
  4. POMALYST [Concomitant]
     Indication: PLASMA CELL MYELOMA
     Dates: start: 201302, end: 201402
  5. POMALYST [Concomitant]
     Dates: start: 201404
  6. DECADRON [Concomitant]
     Indication: PLASMA CELL MYELOMA
  7. ACICLOVIR [Concomitant]
     Indication: PRODUCT USED FOR UNKNOWN INDICATION
  8. FOLIC ACID [Concomitant]
     Indication: PRODUCT USED FOR UNKNOWN INDICATION
  9. LABETOLOL [Concomitant]
     Indication: PRODUCT USED FOR UNKNOWN INDICATION
  10. PROTONIX [Concomitant]
     Indication: PRODUCT USED FOR UNKNOWN INDICATION

REACTIONS (2)
  - Interstitial lung disease [Recovered/Resolved]
  - Neutropenia [Recovered/Resolved]
